FAERS Safety Report 7281217-8 (Version None)
Quarter: 2011Q1

REPORT INFORMATION
  Report Type: 
  Country: None (occurrence: None)
  Receive Date: 20110208
  Receipt Date: 20110131
  Transmission Date: 20110831
  Serious: Yes (Death, Other)
  Sender: FDA-Public Use
  Company Number: CHPA2011US01997

PATIENT
  Sex: Male

DRUGS (6)
  1. OXYCODONE HCL [Suspect]
     Route: 048
  2. MEPROBAMATE [Suspect]
     Route: 048
  3. VALPROIC ACID [Suspect]
     Route: 048
  4. ACETAMINOPHEN [Suspect]
     Route: 048
  5. HYDROXYZINE [Suspect]
     Route: 048
  6. CARISOPRODOL [Suspect]
     Route: 048

REACTIONS (2)
  - CARDIO-RESPIRATORY ARREST [None]
  - INTENTIONAL DRUG MISUSE [None]
